FAERS Safety Report 17517529 (Version 1)
Quarter: 2020Q1

REPORT INFORMATION
  Report Type: Spontaneous
  Country: US (occurrence: US)
  Receive Date: 20200309
  Receipt Date: 20200309
  Transmission Date: 20200409
  Serious: Yes (Other)
  Sender: FDA-Public Use
  Company Number: None

PATIENT
  Age: 58 Year
  Sex: Female
  Weight: 120.6 kg

DRUGS (15)
  1. ADVAIR HFA [Concomitant]
     Active Substance: FLUTICASONE PROPIONATE\SALMETEROL XINAFOATE
  2. VITAMIN K2 MK7 [Concomitant]
  3. OMEPRAZOLE. [Concomitant]
     Active Substance: OMEPRAZOLE
  4. CALCIUM-MAGNESIUM [Concomitant]
     Active Substance: CALCIUM\MAGNESIUM
  5. ROSUVASTATIN CALCIUM. [Concomitant]
     Active Substance: ROSUVASTATIN CALCIUM
  6. PROCAPS SUPPLEMENTS [Concomitant]
  7. OLMESARTAN MEDOXOMIL TABLETS, USP. 40 MG. [Suspect]
     Active Substance: OLMESARTAN MEDOXOMIL
     Indication: HYPERTENSION
     Dosage: ?          QUANTITY:1 TABLET(S);?
     Route: 048
     Dates: start: 20200307, end: 20200308
  8. METFORMIN HCL [Concomitant]
     Active Substance: METFORMIN HYDROCHLORIDE
  9. IRON PLUS [Concomitant]
  10. ESSENTIAL 1 [Concomitant]
  11. JANUVIA [Concomitant]
     Active Substance: SITAGLIPTIN PHOSPHATE
  12. HEMP EXTRACT [Concomitant]
     Active Substance: HEMP
  13. KCL ER [Concomitant]
  14. MOVE FREE ULTRA [Concomitant]
  15. VIT. D3 [Concomitant]

REACTIONS (4)
  - Product quality issue [None]
  - Visual impairment [None]
  - Vision blurred [None]
  - Product substitution issue [None]

NARRATIVE: CASE EVENT DATE: 20200307
